FAERS Safety Report 10332813 (Version 5)
Quarter: 2014Q4

REPORT INFORMATION
  Report Type: Report from Study
  Country: TH (occurrence: TH)
  Receive Date: 20140722
  Receipt Date: 20141229
  Transmission Date: 20150528
  Serious: Yes (Death, Hospitalization, Other)
  Sender: FDA-Public Use
  Company Number: TH-TEVA-491059USA

PATIENT
  Age: 31 Year
  Sex: Female
  Weight: 46 kg

DRUGS (4)
  1. BENDAMUSTINE HYDROCHLORIDE [Suspect]
     Active Substance: BENDAMUSTINE HYDROCHLORIDE
     Indication: LYMPHOCYTIC LYMPHOMA
     Dosage: 140 MG/M2, IN 1 CYCLICAL 2 DAYS/CYCLE
     Route: 042
     Dates: start: 20140423
  2. IMIPENEM [Concomitant]
     Active Substance: IMIPENEM
     Indication: FEBRILE NEUTROPENIA
     Route: 042
     Dates: start: 20140503, end: 20140601
  3. FILGRASTIM [Concomitant]
     Active Substance: FILGRASTIM
     Indication: NEUTROPENIA
     Route: 042
     Dates: start: 20140503, end: 20140508
  4. BENDAMUSTINE HYDROCHLORIDE [Suspect]
     Active Substance: BENDAMUSTINE HYDROCHLORIDE
     Dosage: 140 MG/M2, IN 1 CYCLICAL 2 DAYS/CYCLE
     Route: 042
     Dates: start: 20140521

REACTIONS (7)
  - Bronchopulmonary aspergillosis [Fatal]
  - Lymphocytic lymphoma [Not Recovered/Not Resolved]
  - Neutropenia [Unknown]
  - Haemoptysis [Not Recovered/Not Resolved]
  - Anaemia [Not Recovered/Not Resolved]
  - Thrombocytopenia [Not Recovered/Not Resolved]
  - Febrile neutropenia [Not Recovered/Not Resolved]

NARRATIVE: CASE EVENT DATE: 20140502
